FAERS Safety Report 5995113-7 (Version None)
Quarter: 2008Q4

REPORT INFORMATION
  Report Type: 
  Country: None (occurrence: None)
  Receive Date: 20081212
  Receipt Date: 20081203
  Transmission Date: 20090506
  Serious: Yes (Hospitalization, Other)
  Sender: FDA-Public Use
  Company Number: US-PFIZER INC-2008088932

PATIENT
  Sex: Female
  Weight: 98.866 kg

DRUGS (5)
  1. LIPITOR [Suspect]
     Indication: BLOOD CHOLESTEROL INCREASED
     Route: 048
     Dates: start: 20041001
  2. CENTRUM SILVER [Concomitant]
  3. LESCOL [Concomitant]
  4. CELEXA [Concomitant]
  5. LITHIUM [Concomitant]

REACTIONS (8)
  - ALOPECIA [None]
  - ARTHRALGIA [None]
  - BURSITIS [None]
  - HAEMATOCRIT DECREASED [None]
  - HAEMOGLOBIN DECREASED [None]
  - MEAN CELL HAEMOGLOBIN [None]
  - OSTEOARTHRITIS [None]
  - RED BLOOD CELL SEDIMENTATION RATE INCREASED [None]
